FAERS Safety Report 17575493 (Version 1)
Quarter: 2020Q1

REPORT INFORMATION
  Report Type: Spontaneous
  Country: US (occurrence: US)
  Receive Date: 20200323
  Receipt Date: 20200323
  Transmission Date: 20200409
  Serious: Yes (Hospitalization, Other)
  Sender: FDA-Public Use
  Company Number: None

PATIENT
  Age: 26 Year
  Sex: Male
  Weight: 85.5 kg

DRUGS (2)
  1. CELEXA [Concomitant]
     Active Substance: CITALOPRAM HYDROBROMIDE
  2. KRAVE KRATOM [Suspect]
     Active Substance: HERBALS\MITRAGYNINE
     Indication: PAIN
     Route: 048
     Dates: start: 20150101, end: 20200323

REACTIONS (3)
  - Aggression [None]
  - Unresponsive to stimuli [None]
  - Suicide attempt [None]

NARRATIVE: CASE EVENT DATE: 20190621
